FAERS Safety Report 9440031 (Version 2)
Quarter: 2013Q3

REPORT INFORMATION
  Report Type: Spontaneous
  Country: BR (occurrence: BR)
  Receive Date: 20130805
  Receipt Date: 20130814
  Transmission Date: 20140515
  Serious: Yes (Other)
  Sender: FDA-Public Use
  Company Number: BR-JNJFOC-20130719043

PATIENT
  Age: 51 Year
  Sex: Female
  Weight: 72 kg

DRUGS (16)
  1. SIMPONI [Suspect]
     Indication: RHEUMATOID ARTHRITIS
     Route: 058
     Dates: start: 20130725, end: 20130725
  2. SIMPONI [Suspect]
     Indication: RHEUMATOID ARTHRITIS
     Route: 058
     Dates: start: 201306
  3. ARADOIS H [Concomitant]
     Indication: HYPERTENSION
     Route: 065
  4. SIMVASTATIN [Concomitant]
     Indication: BLOOD CHOLESTEROL INCREASED
     Route: 065
  5. ZETIA [Concomitant]
     Indication: BLOOD CHOLESTEROL INCREASED
     Route: 065
  6. VITAMIN D [Concomitant]
     Indication: VITAMIN D DEFICIENCY
     Route: 065
  7. FOLIC ACID [Concomitant]
     Indication: FOLATE DEFICIENCY
     Route: 065
  8. FOLIC ACID [Concomitant]
     Indication: APHTHOUS STOMATITIS
     Route: 065
  9. ATENOLOL [Concomitant]
     Indication: HYPERTENSION
     Route: 065
  10. FLUOXETINE [Concomitant]
     Indication: DEPRESSION
     Route: 065
  11. PREDNISOLONE [Concomitant]
     Route: 065
  12. CHOLECALCIFEROL [Concomitant]
     Indication: VITAMIN D DECREASED
     Route: 065
  13. LIPITOR [Concomitant]
     Route: 065
  14. ACETAMINOPHEN [Concomitant]
     Indication: PAIN
     Route: 065
  15. DORFLEX [Concomitant]
     Indication: PAIN
     Route: 065
  16. OMEPRAZOLE [Concomitant]
     Indication: GASTRIC DISORDER
     Route: 065

REACTIONS (1)
  - Hypersensitivity [Recovered/Resolved]
